FAERS Safety Report 11128987 (Version 1)
Quarter: 2015Q2

REPORT INFORMATION
  Report Type: Spontaneous
  Country: US (occurrence: US)
  Receive Date: 20150521
  Receipt Date: 20150521
  Transmission Date: 20150821
  Serious: Yes (Hospitalization, Other)
  Sender: FDA-Public Use
  Company Number: US-GLAXOSMITHKLINE-US2015GSK068750

PATIENT
  Age: 59 Year
  Sex: Female
  Weight: 45.81 kg

DRUGS (6)
  1. KLOR-CON [Concomitant]
     Active Substance: POTASSIUM CHLORIDE
  2. OXYCODONE + APAP [Concomitant]
  3. TYKERB [Suspect]
     Active Substance: LAPATINIB DITOSYLATE
     Indication: BREAST CANCER
     Dosage: 1000 MG, 1D
     Route: 048
     Dates: start: 20150414
  4. CAPECITABINE. [Concomitant]
     Active Substance: CAPECITABINE
  5. METHADONE [Concomitant]
     Active Substance: METHADONE HYDROCHLORIDE
  6. FENTANYL. [Concomitant]
     Active Substance: FENTANYL

REACTIONS (3)
  - Aspiration pleural cavity [Unknown]
  - Pulmonary oedema [Unknown]
  - Dehydration [Unknown]

NARRATIVE: CASE EVENT DATE: 201504
